FAERS Safety Report 15397464 (Version 7)
Quarter: 2021Q3

REPORT INFORMATION
  Report Type: Report from Study
  Country: JP (occurrence: JP)
  Receive Date: 20180918
  Receipt Date: 20210922
  Transmission Date: 20211014
  Serious: Yes (Death, Life-Threatening, Hospitalization, Disabling, Other)
  Sender: FDA-Public Use
  Company Number: PHJP2018JP016410

PATIENT
  Age: 76 Year
  Sex: Female

DRUGS (2)
  1. REVOLADE TAB [Suspect]
     Active Substance: ELTROMBOPAG OLAMINE
     Indication: APLASTIC ANAEMIA
     Dosage: 75 MG
     Route: 048
     Dates: start: 20180822, end: 20181106
  2. NEORAL [Suspect]
     Active Substance: CYCLOSPORINE
     Indication: APLASTIC ANAEMIA
     Dosage: 200 MG
     Route: 048
     Dates: start: 20180807

REACTIONS (9)
  - Cerebral haemorrhage [Fatal]
  - Brain abscess [Fatal]
  - Altered state of consciousness [Fatal]
  - Fungal infection [Unknown]
  - Depressed level of consciousness [Fatal]
  - Cerebral infarction [Fatal]
  - Blood pressure decreased [Fatal]
  - Aplastic anaemia [Fatal]
  - Disease progression [Fatal]

NARRATIVE: CASE EVENT DATE: 20180906
